FAERS Safety Report 15805849 (Version 1)
Quarter: 2019Q1

REPORT INFORMATION
  Report Type: Spontaneous
  Country: KR (occurrence: KR)
  Receive Date: 20190110
  Receipt Date: 20190110
  Transmission Date: 20190417
  Serious: Yes (Other)
  Sender: FDA-Public Use
  Company Number: KR-009507513-1901KOR001665

PATIENT
  Age: 40 Year
  Sex: Female

DRUGS (2)
  1. IMPLANON [Suspect]
     Active Substance: ETONOGESTREL
     Indication: DYSMENORRHOEA
     Dosage: 1 IMPLANT
     Route: 059
     Dates: start: 20180809, end: 20181226
  2. IMPLANON [Suspect]
     Active Substance: ETONOGESTREL
     Indication: MENORRHAGIA

REACTIONS (3)
  - Haemoglobin decreased [Unknown]
  - Product use in unapproved indication [Unknown]
  - Menometrorrhagia [Unknown]

NARRATIVE: CASE EVENT DATE: 2018
